FAERS Safety Report 12300741 (Version 2)
Quarter: 2016Q2

REPORT INFORMATION
  Report Type: Spontaneous
  Country: US (occurrence: US)
  Receive Date: 20160425
  Receipt Date: 20160427
  Transmission Date: 20160815
  Serious: No
  Sender: FDA-Public Use
  Company Number: US-TEVA-654282USA

PATIENT
  Sex: Male
  Weight: 75.82 kg

DRUGS (8)
  1. PROVIGIL [Suspect]
     Active Substance: MODAFINIL
     Indication: DEPRESSED LEVEL OF CONSCIOUSNESS
     Route: 065
  2. CYMBALTA [Concomitant]
     Active Substance: DULOXETINE HYDROCHLORIDE
     Indication: PAIN
  3. BACLOFEN. [Concomitant]
     Active Substance: BACLOFEN
  4. FENTORA [Suspect]
     Active Substance: FENTANYL CITRATE
     Indication: SPINAL CORD INJURY
     Dosage: 4-5 TIMES A DAY
     Route: 002
     Dates: start: 2006
  5. MODAFINIL. [Suspect]
     Active Substance: MODAFINIL
     Indication: DEPRESSED LEVEL OF CONSCIOUSNESS
     Route: 065
  6. DIAZEPAM. [Concomitant]
     Active Substance: DIAZEPAM
  7. LYRICA [Concomitant]
     Active Substance: PREGABALIN
  8. MORPHINE [Concomitant]
     Active Substance: MORPHINE

REACTIONS (5)
  - Product blister packaging issue [Unknown]
  - Product substitution issue [Unknown]
  - Drug tolerance [Unknown]
  - Product physical issue [Unknown]
  - Off label use [Unknown]

NARRATIVE: CASE EVENT DATE: 2006
